FAERS Safety Report 6886270-9 (Version None)
Quarter: 2010Q3

REPORT INFORMATION
  Report Type: 
  Country: None (occurrence: None)
  Receive Date: 20100729
  Receipt Date: 20090122
  Transmission Date: 20110219
  Serious: Yes (Hospitalization, Other)
  Sender: FDA-Public Use
  Company Number: US-PFIZER INC-2009159650

PATIENT
  Sex: Male

DRUGS (5)
  1. CELEBREX [Suspect]
     Dosage: UNK
     Route: 048
     Dates: start: 19990810, end: 20040713
  2. KLOR-CON [Concomitant]
     Route: 048
  3. AVAPRO [Concomitant]
     Route: 048
  4. TORSEMIDE [Concomitant]
     Route: 048
  5. DILTIAZEM [Concomitant]
     Route: 048

REACTIONS (1)
  - CEREBROVASCULAR ACCIDENT [None]
